FAERS Safety Report 23428170 (Version 3)
Quarter: 2024Q1

REPORT INFORMATION
  Report Type: Report from Study
  Country: US (occurrence: US)
  Receive Date: 20240122
  Receipt Date: 20240319
  Transmission Date: 20240409
  Serious: Yes (Hospitalization)
  Sender: FDA-Public Use
  Company Number: US-JNJFOC-20240133166

PATIENT
  Age: 59 Year
  Sex: Female

DRUGS (2)
  1. SPRAVATO [Suspect]
     Active Substance: ESKETAMINE
     Indication: Depression
     Dosage: 84 MG, 9 TOTAL DOSES
     Dates: start: 20230727, end: 20231101
  2. SPRAVATO [Suspect]
     Active Substance: ESKETAMINE
     Dates: start: 20231120, end: 20231120

REACTIONS (2)
  - Spinal fusion surgery [Unknown]
  - Adverse event [Unknown]

NARRATIVE: CASE EVENT DATE: 20230101
